FAERS Safety Report 8519729 (Version 2)
Quarter: 2012Q4

REPORT INFORMATION
  Report Type: 
  Country: US (occurrence: US)
  Receive Date: 20120418
  Receipt Date: 20121120
  Transmission Date: 20130627
  Serious: No
  Sender: FDA-Public Use
  Company Number: US-ASTRAZENECA-2011SE30369

PATIENT
  Age: 60 Year
  Sex: Male
  Weight: 105.2 kg

DRUGS (18)
  1. NEXIUM [Suspect]
     Indication: GASTROOESOPHAGEAL REFLUX DISEASE
     Route: 048
  2. LISINOPRIL [Suspect]
     Route: 048
  3. SEROQUEL [Suspect]
     Indication: RESTLESSNESS
     Route: 048
     Dates: start: 200907
  4. SEROQUEL [Suspect]
     Indication: DEPRESSION
     Route: 048
     Dates: start: 200907
  5. PEPTO BISMOL [Concomitant]
  6. VICODIN [Concomitant]
     Indication: MONARTHRITIS
  7. VICODIN [Concomitant]
     Indication: ANALGESIC THERAPY
  8. LORAZEPAM [Concomitant]
  9. CITALOPRAM [Concomitant]
  10. CITALOPRAM [Concomitant]
  11. GEMFIBROZIL [Concomitant]
     Indication: BLOOD CHOLESTEROL ABNORMAL
  12. SIMVASTATIN [Concomitant]
  13. ASPIRIN [Concomitant]
     Indication: ANTICOAGULANT THERAPY
  14. TRAMADOL HDL [Concomitant]
  15. WELLBUTRIN SR [Concomitant]
  16. EYE DROPS [Concomitant]
     Indication: INTRAOCULAR PRESSURE INCREASED
  17. PRESERVISION EYE VITAMINS [Concomitant]
  18. OMEGA 3 FISHOIL [Concomitant]
     Indication: CARDIAC DISORDER

REACTIONS (15)
  - Choking [Unknown]
  - Chest pain [Unknown]
  - Chest discomfort [Unknown]
  - Pollakiuria [Unknown]
  - Gastrooesophageal reflux disease [Unknown]
  - Cough [Unknown]
  - Dyspepsia [Unknown]
  - Dyspnoea [Unknown]
  - Dysphagia [Unknown]
  - Gastric disorder [Unknown]
  - Abdominal pain upper [Unknown]
  - Vomiting [Unknown]
  - Drug dose omission [Unknown]
  - Wrong technique in drug usage process [Unknown]
  - Drug prescribing error [Unknown]
